FAERS Safety Report 5656514-X (Version None)
Quarter: 2008Q1

REPORT INFORMATION
  Report Type: 
  Country: None (occurrence: None)
  Receive Date: 20080309
  Receipt Date: 20080127
  Transmission Date: 20080703
  Serious: No
  Sender: FDA-Public Use
  Company Number: US-BAYER-200810420BCC

PATIENT
  Age: 38 Year
  Sex: Female
  Weight: 52 kg

DRUGS (2)
  1. ALEVE [Suspect]
     Indication: DRUG USE FOR UNKNOWN INDICATION
     Dosage: TOTAL DAILY DOSE: 220 MG  UNIT DOSE: 220 MG
     Route: 048
     Dates: start: 20080127
  2. BENADRYL [Concomitant]
     Indication: URTICARIA CHRONIC
     Route: 048

REACTIONS (4)
  - HYPERSENSITIVITY [None]
  - LIP SWELLING [None]
  - THROAT IRRITATION [None]
  - URTICARIA [None]
